FAERS Safety Report 16547011 (Version 4)
Quarter: 2019Q4

REPORT INFORMATION
  Report Type: Report from Study
  Country: JP (occurrence: JP)
  Receive Date: 20190709
  Receipt Date: 20191015
  Transmission Date: 20200122
  Serious: Yes (Death, Other)
  Sender: FDA-Public Use
  Company Number: JP-ASTELLAS-2019JP002663

PATIENT
  Age: 84 Year
  Sex: Male
  Weight: 53 kg

DRUGS (16)
  1. ATORVASTATIN                       /01326102/ [Concomitant]
     Active Substance: ATORVASTATIN
     Indication: ACUTE MYELOID LEUKAEMIA
     Dosage: 5 MG/DAY, UNKNOWN FREQ.
     Route: 048
     Dates: end: 20190228
  2. CARBAZOCHROME [Concomitant]
     Active Substance: CARBAZOCHROME
     Indication: ACUTE MYELOID LEUKAEMIA
     Dosage: 60 MG/DAY, UNKNOWN FREQ.
     Route: 048
     Dates: start: 20190220, end: 20190228
  3. ASP2215 [Suspect]
     Active Substance: GILTERITINIB
     Indication: ACUTE MYELOID LEUKAEMIA RECURRENT
     Route: 048
     Dates: start: 20190131, end: 20190228
  4. FLUCONAZOLE. [Concomitant]
     Active Substance: FLUCONAZOLE
     Indication: ACUTE MYELOID LEUKAEMIA
     Dosage: 100 MG/DAY, UNKNOWN FREQ.
     Route: 048
     Dates: end: 20190201
  5. CEFEPIME HYDROCHLORIDE. [Concomitant]
     Active Substance: CEFEPIME HYDROCHLORIDE
     Indication: ACUTE MYELOID LEUKAEMIA
     Route: 065
     Dates: start: 20190204, end: 20190215
  6. DAIPHEN [Concomitant]
     Active Substance: SULFAMETHOXAZOLE\TRIMETHOPRIM
     Indication: ACUTE MYELOID LEUKAEMIA
     Dosage: 1 DF/DAY, UNKNOWN FREQ.
     Route: 048
     Dates: end: 20190228
  7. NEXIUM [Concomitant]
     Active Substance: ESOMEPRAZOLE MAGNESIUM
     Indication: ACUTE MYELOID LEUKAEMIA
     Dosage: 20 MG/DAY, UNKNOWN FREQ.
     Route: 048
     Dates: end: 20190228
  8. URIEF [Concomitant]
     Active Substance: SILODOSIN
     Indication: ACUTE MYELOID LEUKAEMIA
     Dosage: 8 MG/DAY, UNKNOWN FREQ.
     Route: 048
     Dates: end: 20190228
  9. FUNGUARD [Concomitant]
     Active Substance: MICAFUNGIN SODIUM
     Indication: ACUTE MYELOID LEUKAEMIA
     Dosage: 75 MG/DAY, UNKNOWN FREQ.
     Route: 065
     Dates: start: 20190202, end: 20190228
  10. CEFTAZIDIME                        /00559702/ [Concomitant]
     Indication: ACUTE MYELOID LEUKAEMIA
     Dosage: 2 G/DAY, UNKNOWN FREQ.
     Route: 065
     Dates: start: 20190216, end: 20190228
  11. ATENOLOL. [Concomitant]
     Active Substance: ATENOLOL
     Indication: ACUTE MYELOID LEUKAEMIA
     Dosage: 25 MG/DAY, UNKNOWN FREQ.
     Route: 048
     Dates: end: 20190228
  12. MAGNESIUM OXIDE. [Concomitant]
     Active Substance: MAGNESIUM OXIDE
     Indication: ACUTE MYELOID LEUKAEMIA
     Dosage: 660 MG/DAY, UNKNOWN FREQ.
     Route: 048
     Dates: end: 20190228
  13. GOSHAJINKIGAN [Concomitant]
     Active Substance: HERBALS
     Indication: ACUTE MYELOID LEUKAEMIA
     Dosage: 7.5 G/DAY, UNKNOWN FREQ.
     Route: 048
     Dates: start: 20190215, end: 20190221
  14. CARBAZOCHROME [Concomitant]
     Active Substance: CARBAZOCHROME
     Indication: GASTROINTESTINAL HAEMORRHAGE
  15. BAYASPIRIN [Concomitant]
     Active Substance: ASPIRIN
     Indication: ACUTE MYELOID LEUKAEMIA
     Dosage: 100 MG/DAY, UNKNOWN FREQ.
     Route: 048
     Dates: end: 20190228
  16. FEBURIC [Concomitant]
     Active Substance: FEBUXOSTAT
     Indication: ACUTE MYELOID LEUKAEMIA
     Dosage: 10 MG/DAY, UNKNOWN FREQ.
     Route: 048
     Dates: end: 20190221

REACTIONS (4)
  - Hepatic function abnormal [Not Recovered/Not Resolved]
  - Acute myeloid leukaemia recurrent [Fatal]
  - Blood creatine phosphokinase increased [Not Recovered/Not Resolved]
  - Gastrointestinal haemorrhage [Not Recovered/Not Resolved]

NARRATIVE: CASE EVENT DATE: 20190208
